FAERS Safety Report 9877943 (Version 3)
Quarter: 2014Q1

REPORT INFORMATION
  Report Type: Spontaneous
  Country: JP (occurrence: JP)
  Receive Date: 20140206
  Receipt Date: 20140218
  Transmission Date: 20141002
  Serious: Yes (Hospitalization, Other)
  Sender: FDA-Public Use
  Company Number: JP-JNJFOC-20140200572

PATIENT
  Age: 51 Year
  Sex: Male
  Weight: 99.1 kg

DRUGS (4)
  1. INFLIXIMAB [Suspect]
     Indication: PSORIASIS
     Dosage: 5TH TREATMENT
     Route: 042
     Dates: start: 201009
  2. INFLIXIMAB [Suspect]
     Indication: PSORIASIS
     Dosage: DOSE: 500 MG
     Route: 042
     Dates: start: 201003
  3. STELARA [Suspect]
     Indication: PSORIASIS
     Route: 058
  4. CICLOSPORIN [Suspect]
     Indication: PSORIASIS
     Route: 065

REACTIONS (1)
  - Rectosigmoid cancer metastatic [Unknown]
